FAERS Safety Report 17218893 (Version 3)
Quarter: 2020Q1

REPORT INFORMATION
  Report Type: Spontaneous
  Country: US (occurrence: US)
  Receive Date: 20191231
  Receipt Date: 20200213
  Transmission Date: 20200409
  Serious: Yes (Life-Threatening, Other)
  Sender: FDA-Public Use
  Company Number: US-009507513-1912USA011666

PATIENT
  Age: 25 Year
  Sex: Male
  Weight: 124.2 kg

DRUGS (13)
  1. BRIDION [Suspect]
     Active Substance: SUGAMMADEX
     Indication: NEUROMUSCULAR BLOCKADE REVERSAL
     Dosage: 200 MILLIGRAM IN 2 ML, ONCE; STRENGTH: 1MG/0.01ML
     Route: 042
     Dates: start: 20191224, end: 20191224
  2. ROCURONIUM BROMIDE. [Concomitant]
     Active Substance: ROCURONIUM BROMIDE
     Dosage: 5 MILLIGRAM IN 0.5 ML; STRENGTH: 10MG/ML - 10 ML INJECTION
     Route: 042
     Dates: start: 20191224
  3. LIDOCAINE. [Concomitant]
     Active Substance: LIDOCAINE
     Dosage: 50 MILLIGRAM IN 2.5 ML; STRENGTH: 20MG/1ML 2%-5ML SYRINGE
     Route: 042
     Dates: start: 20191224
  4. PROPOFOL. [Concomitant]
     Active Substance: PROPOFOL
     Dosage: 50 MILLIGRAM IN 5 ML; STRENGTH: 50MG/5ML
     Route: 042
     Dates: start: 20191224
  5. DEXMEDETOMIDINE. [Concomitant]
     Active Substance: DEXMEDETOMIDINE
     Dosage: 60 MICROGRAM IN 30 ML; STRENGTH: 200MG/2ML
     Route: 042
     Dates: start: 20191224, end: 20191224
  6. ONDANSETRON [Concomitant]
     Active Substance: ONDANSETRON
     Dosage: 4 MILLIGRAM IN 2 ML; STRENGTH: 4MG/2ML
     Route: 042
     Dates: start: 20191224
  7. FENTANYL. [Concomitant]
     Active Substance: FENTANYL
     Dosage: 50 MICROGRAM IN 1 ML; STRENGTH: 50MCG/ML-2ML INJECTION
     Route: 042
     Dates: start: 20191224
  8. PROPOFOL. [Concomitant]
     Active Substance: PROPOFOL
     Dosage: 250 MILLIGRAM IN 25 ML; STRENGTH: 50MG/5ML
     Route: 042
     Dates: start: 20191224
  9. ACETAMINOPHEN. [Concomitant]
     Active Substance: ACETAMINOPHEN
     Dosage: 100 MILLIGRAM IN 10 ML; STRENGTH: 1000MG/100ML; FORMULATION REPORTED AS ^RTU^
     Route: 042
     Dates: start: 20191224, end: 20191224
  10. SUCCINYLCHOLINE BROMIDE [Concomitant]
     Active Substance: SUXAMETHONIUM BROMIDE
     Dosage: 100 MILLIGRAM IN 5 ML; STRENGTH: 20MG/ML-10ML INJECTION
     Route: 042
     Dates: start: 20191224
  11. FENTANYL. [Concomitant]
     Active Substance: FENTANYL
     Dosage: 100 MICROGRAM IN 2 ML; STRENGTH: 50MCG/ML-2ML INJECTION
     Route: 042
     Dates: start: 20191224
  12. ROCURONIUM BROMIDE. [Concomitant]
     Active Substance: ROCURONIUM BROMIDE
     Dosage: 30 MILLIGRAM IN 3 ML; STRENGTH: 10MG/ML - 10 ML INJECTION
     Route: 042
     Dates: start: 20191224
  13. DEXAMETHASONE. [Concomitant]
     Active Substance: DEXAMETHASONE
     Dosage: 12 MILLIGRAM IN 3 ML; STRENGTH: 4MG/ML-5ML INJECTION
     Route: 042
     Dates: start: 20191224

REACTIONS (2)
  - Bradycardia [Recovered/Resolved]
  - Cardiac arrest [Recovered/Resolved]

NARRATIVE: CASE EVENT DATE: 20191224
